FAERS Safety Report 6111543-7 (Version None)
Quarter: 2009Q1

REPORT INFORMATION
  Report Type: 
  Country: None (occurrence: None)
  Receive Date: 20090310
  Receipt Date: 20090310
  Transmission Date: 20090719
  Serious: Yes (Other)
  Sender: FDA-Public Use
  Company Number: None

PATIENT
  Age: 56 Year
  Sex: Female

DRUGS (2)
  1. PHENYTOIN SODIUM [Suspect]
     Indication: CEREBRAL DISORDER
     Dosage: 300 MG ONCE DAILY
     Dates: start: 20090218, end: 20090307
  2. PHENYTOIN SODIUM [Suspect]
     Indication: CEREBROVASCULAR ACCIDENT
     Dosage: 300 MG ONCE DAILY
     Dates: start: 20090218, end: 20090307

REACTIONS (2)
  - BLOOD GLUCOSE INCREASED [None]
  - EYE PAIN [None]
